FAERS Safety Report 6118493-0 (Version None)
Quarter: 2009Q1

REPORT INFORMATION
  Report Type: 
  Country: None (occurrence: None)
  Receive Date: 20090314
  Receipt Date: 20090220
  Transmission Date: 20090719
  Serious: No
  Sender: FDA-Public Use
  Company Number: US-ABBOTT-09P-163-0558763-00

PATIENT
  Sex: Female

DRUGS (7)
  1. HUMIRA [Suspect]
     Indication: RHEUMATOID ARTHRITIS
     Route: 058
     Dates: start: 20090101
  2. OXAPROZIN [Concomitant]
     Indication: ARTHRITIS
     Route: 048
  3. METHOTREXATE [Concomitant]
     Indication: RHEUMATOID ARTHRITIS
     Dosage: 20MG/WK
     Route: 048
  4. ENALAPRIL [Concomitant]
     Indication: HYPERTENSION
     Route: 048
  5. PRAVASTATIN [Concomitant]
     Indication: BLOOD CHOLESTEROL INCREASED
     Route: 048
  6. MULTI-VITAMIN [Concomitant]
     Indication: MEDICAL DIET
     Route: 048
  7. CALCIUM [Concomitant]
     Indication: MEDICAL DIET
     Route: 048

REACTIONS (3)
  - INCORRECT DOSE ADMINISTERED [None]
  - INJECTION SITE HAEMATOMA [None]
  - WRONG TECHNIQUE IN DRUG USAGE PROCESS [None]
